FAERS Safety Report 7064236-6 (Version None)
Quarter: 2010Q4

REPORT INFORMATION
  Report Type: 
  Country: None (occurrence: None)
  Receive Date: 20101027
  Receipt Date: 20101013
  Transmission Date: 20110411
  Serious: Yes (Hospitalization)
  Sender: FDA-Public Use
  Company Number: KR-RANBAXY-2010RR-38272

PATIENT
  Age: 53 Year
  Sex: Male

DRUGS (2)
  1. FLUCONAZOLE [Suspect]
  2. BRODIFACOUM (SUPERWARFARIN ) [Suspect]

REACTIONS (5)
  - ACTIVATED PARTIAL THROMBOPLASTIN TIME PROLONGED [None]
  - DRUG INTERACTION [None]
  - DRUG TOXICITY [None]
  - PERITONEAL HAEMORRHAGE [None]
  - PROTHROMBIN TIME PROLONGED [None]
